FAERS Safety Report 11037891 (Version 1)
Quarter: 2015Q2

REPORT INFORMATION
  Report Type: Spontaneous
  Country: US (occurrence: None)
  Receive Date: 20150414
  Receipt Date: 20150414
  Transmission Date: 20150821
  Serious: Yes (Life-Threatening, Hospitalization)
  Sender: FDA-Public Use
  Company Number: 1713747-2015-99927

PATIENT
  Age: 62 Year
  Sex: Male
  Weight: 77.6 kg

DRUGS (13)
  1. ZYLOPRIM [Concomitant]
     Active Substance: ALLOPURINOL
  2. VITMAIN D3 [Concomitant]
  3. DELFLEX [Suspect]
     Active Substance: CALCIUM CHLORIDE\DEXTROSE MONOHYDRATE\MAGNESIUM CHLORIDE\SODIUM CHLORIDE\SODIUM LACTATE
     Indication: CHRONIC KIDNEY DISEASE
     Dosage: PERITONEAL DIALYSIS
     Dates: start: 20150106
  4. ECOTRIN [Concomitant]
     Active Substance: ASPIRIN
  5. SYNTHROID [Concomitant]
     Active Substance: LEVOTHYROXINE SODIUM
  6. PRILOSEC [Concomitant]
     Active Substance: OMEPRAZOLE MAGNESIUM
  7. PREDNISONE. [Concomitant]
     Active Substance: PREDNISONE
  8. LIBERTY CYCLER [Concomitant]
     Active Substance: DEVICE
  9. WELLBUTRIN XL [Concomitant]
     Active Substance: BUPROPION HYDROCHLORIDE
  10. RENVELA [Concomitant]
     Active Substance: SEVELAMER CARBONATE
  11. AZOPT OPTHALMIC SUSPENSION [Concomitant]
  12. LIBERTY CYCLER SET [Concomitant]
     Active Substance: DEVICE
  13. LOPRESSOR [Concomitant]
     Active Substance: METOPROLOL TARTRATE

REACTIONS (11)
  - Pulseless electrical activity [None]
  - Fall [None]
  - Confusional state [None]
  - Choking [None]
  - Pneumonia aspiration [None]
  - Uraemic encephalopathy [None]
  - Cardiac arrest [None]
  - Asthenia [None]
  - Mental status changes [None]
  - Respiratory arrest [None]
  - Vomiting [None]

NARRATIVE: CASE EVENT DATE: 20150106
